FAERS Safety Report 10422027 (Version 1)
Quarter: 2014Q3

REPORT INFORMATION
  Report Type: Spontaneous
  Country: US (occurrence: US)
  Receive Date: 20140901
  Receipt Date: 20140901
  Transmission Date: 20150326
  Serious: No
  Sender: FDA-Public Use
  Company Number: US-SANOFI-AVENTIS-2013SA082287

PATIENT
  Age: 75 Year
  Sex: Female

DRUGS (2)
  1. AVAPRO [Suspect]
     Active Substance: IRBESARTAN
     Indication: BLOOD PRESSURE
     Route: 048
     Dates: start: 20130811
  2. AVAPRO [Suspect]
     Active Substance: IRBESARTAN
     Indication: DIABETES MELLITUS
     Route: 048
     Dates: start: 20130811

REACTIONS (3)
  - Dysphagia [Unknown]
  - Wrong technique in drug usage process [Unknown]
  - Product taste abnormal [Unknown]
